FAERS Safety Report 5754944-9 (Version None)
Quarter: 2008Q2

REPORT INFORMATION
  Report Type: 
  Country: None (occurrence: None)
  Receive Date: 20080602
  Receipt Date: 20080529
  Transmission Date: 20081010
  Serious: Yes (Other)
  Sender: FDA-Public Use
  Company Number: CZ-BRISTOL-MYERS SQUIBB COMPANY-14209936

PATIENT
  Age: 53 Year
  Sex: Male

DRUGS (4)
  1. CISPLATIN [Suspect]
     Indication: HEAD AND NECK CANCER
     Route: 042
     Dates: start: 20080228
  2. BLINDED: LAPATINIB [Suspect]
     Indication: HEAD AND NECK CANCER
     Route: 048
     Dates: start: 20080221
  3. BLINDED: PLACEBO [Suspect]
     Indication: HEAD AND NECK CANCER
     Route: 048
     Dates: start: 20080221
  4. RADIOTHERAPY [Suspect]
     Indication: HEAD AND NECK CANCER
     Dosage: 1 DOSAGE FORM = 4 GRAY
     Route: 061
     Dates: start: 20080228

REACTIONS (1)
  - DERMATITIS [None]
